FAERS Safety Report 7162605-7 (Version None)
Quarter: 2010Q4

REPORT INFORMATION
  Report Type: 
  Country: None (occurrence: None)
  Receive Date: 20101215
  Receipt Date: 20091204
  Transmission Date: 20110411
  Serious: Yes (Other)
  Sender: FDA-Public Use
  Company Number: ES-PFIZER INC-2009286215

PATIENT
  Age: 50 Year
  Sex: Male

DRUGS (2)
  1. LYRICA [Suspect]
     Dosage: 25 MG, 3X/DAY
  2. CLOZAPINE [Concomitant]
     Indication: SCHIZOAFFECTIVE DISORDER BIPOLAR TYPE

REACTIONS (5)
  - AGITATION [None]
  - CHOREA [None]
  - EUPHORIC MOOD [None]
  - HYPOTONIA [None]
  - LOSS OF CONSCIOUSNESS [None]
